FAERS Safety Report 16142909 (Version 1)
Quarter: 2019Q2

REPORT INFORMATION
  Report Type: Spontaneous
  Country: BR (occurrence: BR)
  Receive Date: 20190401
  Receipt Date: 20190401
  Transmission Date: 20190711
  Serious: Yes (Other)
  Sender: FDA-Public Use
  Company Number: BR-ELI_LILLY_AND_COMPANY-BR201903014554

PATIENT
  Sex: Male

DRUGS (1)
  1. TADALAFIL. [Suspect]
     Active Substance: TADALAFIL
     Indication: PROSTATE CANCER
     Dosage: UNK, UNKNOWN
     Route: 065

REACTIONS (3)
  - Gastrointestinal carcinoma [Unknown]
  - Gastrooesophageal reflux disease [Unknown]
  - Off label use [Unknown]
